FAERS Safety Report 23380793 (Version 1)
Quarter: 2024Q1

REPORT INFORMATION
  Report Type: Spontaneous
  Country: FR (occurrence: FR)
  Receive Date: 20240109
  Receipt Date: 20240109
  Transmission Date: 20240409
  Serious: Yes (Life-Threatening, Hospitalization)
  Sender: FDA-Public Use
  Company Number: None

PATIENT
  Age: 80 Year
  Sex: Male
  Weight: 83 kg

DRUGS (2)
  1. METHOTREXATE [Suspect]
     Active Substance: METHOTREXATE
     Indication: Cutaneous T-cell lymphoma
     Dosage: 15 MG/J 5 JOURS/7
     Route: 048
     Dates: start: 202209, end: 202301
  2. METHOTREXATE [Suspect]
     Active Substance: METHOTREXATE
     Dosage: 20 MG/J 5 JOURS SUR7
     Route: 048
     Dates: start: 202301, end: 20230207

REACTIONS (1)
  - Interstitial lung disease [Recovered/Resolved]
